FAERS Safety Report 19906765 (Version 2)
Quarter: 2021Q4

REPORT INFORMATION
  Report Type: Spontaneous
  Country: US (occurrence: US)
  Receive Date: 20210930
  Receipt Date: 20211011
  Transmission Date: 20220303
  Serious: Yes (Death, Life-Threatening, Hospitalization, Disabling, Other)
  Sender: FDA-Public Use
  Company Number: US-TEVA-2021-US-1958329

PATIENT
  Age: 7 Decade
  Sex: Male

DRUGS (27)
  1. ETOPOSIDE [Suspect]
     Active Substance: ETOPOSIDE
     Indication: Bone marrow conditioning regimen
     Dosage: RECEIVED AS A PART OF BEAM CONDITIONING
     Route: 065
  2. DOXORUBICIN [Suspect]
     Active Substance: DOXORUBICIN
     Indication: Diffuse large B-cell lymphoma stage IV
     Dosage: INITIALLY RECEIVED AS PART OF R-CHOP REGIMEN (8 CYCLES); LATER RECEIVED AS PART OF R-IVAC REGIMEN
     Route: 065
  3. DOXORUBICIN [Suspect]
     Active Substance: DOXORUBICIN
     Indication: Diffuse large B-cell lymphoma recurrent
  4. GEMCITABINE [Suspect]
     Active Substance: GEMCITABINE
     Indication: Diffuse large B-cell lymphoma
     Route: 065
  5. IFOSFAMIDE [Suspect]
     Active Substance: IFOSFAMIDE
     Indication: Diffuse large B-cell lymphoma recurrent
     Dosage: RECEIVED AS A PART OF R-IVAC REGIMEN
     Route: 065
  6. MELPHALAN [Suspect]
     Active Substance: MELPHALAN
     Indication: Bone marrow conditioning regimen
     Dosage: RECEIVED AS A PART OF BEAM CONDITIONING
     Route: 065
  7. METHOTREXATE [Suspect]
     Active Substance: METHOTREXATE
     Indication: Prophylaxis
     Route: 037
  8. OXALIPLATIN [Suspect]
     Active Substance: OXALIPLATIN
     Indication: Diffuse large B-cell lymphoma
     Dosage: RECEIVED AS A PART OF R-GEMOX REGIMEN (FOUR CYCLES)
     Route: 065
  9. PREDNISONE [Suspect]
     Active Substance: PREDNISONE
     Indication: Diffuse large B-cell lymphoma stage IV
     Dosage: AS PART OF R-CHOP REGIMEN (8 CYCLES)
     Route: 065
  10. VINCRISTINE [Suspect]
     Active Substance: VINCRISTINE
     Indication: Diffuse large B-cell lymphoma stage IV
     Dosage: INITIALLY RECEIVED AS PART OF R-CHOP REGIMEN (8 CYCLES); LATER RECEIVED AS PART OF R-IVAC REGIMEN
     Route: 065
  11. VINCRISTINE [Suspect]
     Active Substance: VINCRISTINE
     Indication: Diffuse large B-cell lymphoma recurrent
  12. RITUXIMAB [Suspect]
     Active Substance: RITUXIMAB
     Indication: Diffuse large B-cell lymphoma stage IV
     Dosage: INITIALLY AS PART OF R-CHOP REGIMEN (8 CYCLES); LATER RECEIVED AS PART OF R-IVAC REGIMEN AND FINA...
     Route: 065
  13. RITUXIMAB [Suspect]
     Active Substance: RITUXIMAB
     Indication: Diffuse large B-cell lymphoma recurrent
  14. CYCLOPHOSPHAMIDE [Suspect]
     Active Substance: CYCLOPHOSPHAMIDE
     Indication: Diffuse large B-cell lymphoma stage IV
     Dosage: INITIALLY RECEIVED AS PART OF R-CHOP REGIMEN (8 CYCLES); LATER RECEIVED AS PART OF R-IVAC REGIMEN
     Route: 065
  15. CYCLOPHOSPHAMIDE [Suspect]
     Active Substance: CYCLOPHOSPHAMIDE
     Indication: Diffuse large B-cell lymphoma recurrent
  16. CARMUSTINE [Suspect]
     Active Substance: CARMUSTINE
     Indication: Bone marrow conditioning regimen
     Dosage: RECEIVED AS A PART OF BEAM CONDITIONING
     Route: 065
  17. CYTARABINE [Suspect]
     Active Substance: CYTARABINE
     Indication: Bone marrow conditioning regimen
     Dosage: RECEIVED AS A PART OF BEAM CONDITIONING
     Route: 065
  18. VORICONAZOLE [Concomitant]
     Active Substance: VORICONAZOLE
     Indication: Aspergillus infection
     Route: 065
  19. VORICONAZOLE [Concomitant]
     Active Substance: VORICONAZOLE
     Indication: Scedosporium infection
  20. VORICONAZOLE [Concomitant]
     Active Substance: VORICONAZOLE
     Indication: Systemic mycosis
  21. MICAFUNGIN. [Concomitant]
     Active Substance: MICAFUNGIN SODIUM
     Indication: Aspergillus infection
     Route: 065
  22. MICAFUNGIN. [Concomitant]
     Active Substance: MICAFUNGIN SODIUM
     Indication: Scedosporium infection
  23. MICAFUNGIN. [Concomitant]
     Active Substance: MICAFUNGIN SODIUM
     Indication: Systemic mycosis
  24. TERBINAFINE [Concomitant]
     Active Substance: TERBINAFINE
     Indication: Aspergillus infection
     Route: 065
  25. TERBINAFINE [Concomitant]
     Active Substance: TERBINAFINE
     Indication: Arthralgia
  26. TERBINAFINE [Concomitant]
     Active Substance: TERBINAFINE
     Indication: Scedosporium infection
  27. TERBINAFINE [Concomitant]
     Active Substance: TERBINAFINE
     Indication: Systemic mycosis

REACTIONS (8)
  - Scedosporium infection [Fatal]
  - Aspergillus infection [Fatal]
  - Infection [Fatal]
  - Neutropenia [Fatal]
  - Renal failure [Fatal]
  - Respiratory failure [Fatal]
  - Systemic mycosis [Fatal]
  - Neutropenia [Fatal]
